FAERS Safety Report 18552311 (Version 1)
Quarter: 2020Q4

REPORT INFORMATION
  Report Type: Spontaneous
  Country: GB (occurrence: GB)
  Receive Date: 20201127
  Receipt Date: 20201127
  Transmission Date: 20210114
  Serious: Yes (Life-Threatening)
  Sender: FDA-Public Use
  Company Number: GB-TEVA-2020-GB-1852444

PATIENT
  Age: 61 Year
  Sex: Male

DRUGS (4)
  1. MOXIFLOXACIN. [Suspect]
     Active Substance: MOXIFLOXACIN
     Indication: CNS VENTRICULITIS
     Dosage: 400 MG
     Route: 048
     Dates: start: 20200923, end: 20201023
  2. TIMOLOL AND BIMATOPROST [Concomitant]
  3. LANSOPRAZOLE. [Concomitant]
     Active Substance: LANSOPRAZOLE
  4. LEVETIRACETAM ACCORD [Concomitant]
     Active Substance: LEVETIRACETAM

REACTIONS (1)
  - Neutropenia [Not Recovered/Not Resolved]

NARRATIVE: CASE EVENT DATE: 20201012
